FAERS Safety Report 10227235 (Version 1)
Quarter: 2014Q2

REPORT INFORMATION
  Report Type: Spontaneous
  Country: GB (occurrence: None)
  Receive Date: 20140606
  Receipt Date: 20140606
  Transmission Date: 20141212
  Serious: Yes (Hospitalization, Other)
  Sender: FDA-Public Use
  Company Number: FK201402130

PATIENT
  Age: 84 Year
  Sex: Female

DRUGS (11)
  1. FUROSEMIDE [Suspect]
     Indication: PRODUCT USED FOR UNKNOWN INDICATION
     Dosage: 20MG, 1 IN 1 D, UNKNOWN
  2. ELIQUIS (APIXABAN) [Suspect]
     Indication: ATRIAL FIBRILLATION
     Route: 048
     Dates: start: 20131204, end: 20140103
  3. ELIQUIS (APIXABAN) [Suspect]
     Indication: CEREBROVASCULAR ACCIDENT
     Route: 048
     Dates: start: 20131204, end: 20140103
  4. WARFARIN (WARFARIN) [Suspect]
     Indication: ATRIAL FIBRILLATION
     Dates: start: 201105
  5. WARFARIN (WARFARIN) [Suspect]
     Indication: CEREBROVASCULAR ACCIDENT
     Dates: start: 201105
  6. DOXAZOSIN (DOXAZOSIN) [Concomitant]
  7. EZETIMIBE (EZETIMIBE) (TABLET) [Concomitant]
  8. FELODIPINE (FELODIPINE) [Concomitant]
  9. ISOSORBIDE MONONITRATE (ISOSORBIDE MONOITRATE) [Concomitant]
  10. LANSOPRAZOLE (LANSOPRAZOLE) [Concomitant]
  11. NICORANDIL (NICORANDIL) [Concomitant]

REACTIONS (4)
  - Ischaemic stroke [None]
  - Renal impairment [None]
  - International normalised ratio decreased [None]
  - Thrombosis [None]
